FAERS Safety Report 6242892-X (Version None)
Quarter: 2009Q2

REPORT INFORMATION
  Report Type: 
  Country: None (occurrence: None)
  Receive Date: 20090624
  Receipt Date: 20090619
  Transmission Date: 20091009
  Serious: Yes (Other)
  Sender: FDA-Public Use
  Company Number: US-ASTRAZENECA-2009UW16657

PATIENT
  Age: 29 Year
  Sex: Female

DRUGS (3)
  1. SEROQUEL XR [Suspect]
     Route: 048
  2. LAMICTAL [Concomitant]
  3. LEXAPRO [Concomitant]

REACTIONS (1)
  - WHITE BLOOD CELL COUNT DECREASED [None]
